FAERS Safety Report 17051032 (Version 4)
Quarter: 2020Q1

REPORT INFORMATION
  Report Type: Report from Study
  Country: US (occurrence: US)
  Receive Date: 20191120
  Receipt Date: 20200318
  Transmission Date: 20200409
  Serious: Yes (Other)
  Sender: FDA-Public Use
  Company Number: NVSC2019US041447

PATIENT
  Age: 48 Year
  Sex: Female

DRUGS (2)
  1. GILENYA [Suspect]
     Active Substance: FINGOLIMOD HYDROCHLORIDE
     Indication: MULTIPLE SCLEROSIS
     Dosage: 0.5 MG, QD
     Route: 048
     Dates: start: 20191112
  2. GILENYA [Suspect]
     Active Substance: FINGOLIMOD HYDROCHLORIDE
     Dosage: 0.5 UNK
     Route: 048

REACTIONS (14)
  - Dysarthria [Unknown]
  - Fall [Unknown]
  - Confusional state [Unknown]
  - Visual impairment [Unknown]
  - Diplopia [Unknown]
  - Dizziness [Recovering/Resolving]
  - Arthralgia [Unknown]
  - Vision blurred [Unknown]
  - Gait disturbance [Unknown]
  - Somnolence [Unknown]
  - Cognitive disorder [Unknown]
  - Intervertebral disc degeneration [Unknown]
  - Seizure [Unknown]
  - Oral herpes [Unknown]

NARRATIVE: CASE EVENT DATE: 20191113
